FAERS Safety Report 14936966 (Version 1)
Quarter: 2018Q2

REPORT INFORMATION
  Report Type: Spontaneous
  Country: IT (occurrence: IT)
  Receive Date: 20180525
  Receipt Date: 20180525
  Transmission Date: 20180711
  Serious: Yes (Other)
  Sender: FDA-Public Use
  Company Number: IT-CONCORDIA PHARMACEUTICALS INC.-E2B_00011889

PATIENT
  Age: 84 Year
  Sex: Female

DRUGS (8)
  1. LANOXIN [Suspect]
     Active Substance: DIGOXIN
     Indication: ATRIAL FIBRILLATION
     Route: 048
     Dates: start: 20180421, end: 20180422
  2. BISOPROLOL FUMARATE. [Suspect]
     Active Substance: BISOPROLOL FUMARATE
     Indication: ATRIAL FIBRILLATION
     Route: 048
  3. NITRO-DUR [Concomitant]
     Active Substance: NITROGLYCERIN
  4. LAMICTAL [Concomitant]
     Active Substance: LAMOTRIGINE
  5. CLEXANE [Concomitant]
     Active Substance: ENOXAPARIN SODIUM
  6. PAROXETINE. [Concomitant]
     Active Substance: PAROXETINE
  7. CLONIDINE. [Concomitant]
     Active Substance: CLONIDINE
  8. FUROSEMIDE. [Concomitant]
     Active Substance: FUROSEMIDE

REACTIONS (1)
  - Bradycardia [Recovering/Resolving]

NARRATIVE: CASE EVENT DATE: 20180422
